FAERS Safety Report 18447189 (Version 1)
Quarter: 2020Q4

REPORT INFORMATION
  Report Type: Spontaneous
  Country: US (occurrence: US)
  Receive Date: 20201030
  Receipt Date: 20201030
  Transmission Date: 20210114
  Serious: No
  Sender: FDA-Public Use
  Company Number: US-NOVOPROD-693877

PATIENT
  Age: 72 Year
  Sex: Female

DRUGS (4)
  1. TRESIBA [Suspect]
     Active Substance: INSULIN DEGLUDEC
     Dosage: DOSE DECREASED
     Route: 058
     Dates: start: 20191014
  2. TRESIBA [Suspect]
     Active Substance: INSULIN DEGLUDEC
     Indication: DIABETES MELLITUS
     Dosage: 6 UNITS
     Route: 058
     Dates: start: 20191014
  3. TRESIBA [Suspect]
     Active Substance: INSULIN DEGLUDEC
     Dosage: 9 UNITS
     Route: 058
     Dates: start: 20191014
  4. TRESIBA [Suspect]
     Active Substance: INSULIN DEGLUDEC
     Dosage: 8 UNITS
     Route: 058
     Dates: start: 20191014

REACTIONS (2)
  - Malaise [Not Recovered/Not Resolved]
  - Blood glucose increased [Not Recovered/Not Resolved]

NARRATIVE: CASE EVENT DATE: 201910
